FAERS Safety Report 6702597-5 (Version None)
Quarter: 2010Q2

REPORT INFORMATION
  Report Type: 
  Country: None (occurrence: None)
  Receive Date: 20100429
  Receipt Date: 20100419
  Transmission Date: 20101027
  Serious: Yes (Other)
  Sender: FDA-Public Use
  Company Number: US-PFIZER INC-2010049547

PATIENT
  Sex: Female

DRUGS (1)
  1. CHANTIX [Suspect]
     Dosage: 1 MG, 2X/DAY

REACTIONS (5)
  - HALLUCINATION [None]
  - MUSCLE SPASMS [None]
  - NIGHTMARE [None]
  - PAIN IN EXTREMITY [None]
  - SKIN EXFOLIATION [None]
